FAERS Safety Report 15448650 (Version 1)
Quarter: 2018Q3

REPORT INFORMATION
  Report Type: Spontaneous
  Country: US (occurrence: US)
  Receive Date: 20180929
  Receipt Date: 20180929
  Transmission Date: 20181010
  Serious: No
  Sender: FDA-Public Use
  Company Number: US-SA-2018SA269821

PATIENT
  Age: 49 Year
  Sex: Female

DRUGS (7)
  1. DUPIXENT [Suspect]
     Active Substance: DUPILUMAB
     Indication: DERMATITIS ATOPIC
     Dosage: 1 DF, QOW
     Route: 058
     Dates: start: 20180731
  2. FLONASE [MOMETASONE FUROATE] [Concomitant]
  3. DOXYCYCLIN [DOXYCYCLINE MONOHYDRATE] [Concomitant]
  4. DIPHENHYDRAMINE. [Concomitant]
     Active Substance: DIPHENHYDRAMINE
  5. ADVIL [IBUPROFEN] [Concomitant]
     Active Substance: IBUPROFEN
  6. IBUPROFEN. [Concomitant]
     Active Substance: IBUPROFEN
  7. LORATADINE. [Concomitant]
     Active Substance: LORATADINE

REACTIONS (5)
  - Conjunctivitis [Unknown]
  - Bone pain [Unknown]
  - Skin fissures [Unknown]
  - Injection site reaction [Unknown]
  - Skin atrophy [Unknown]
